FAERS Safety Report 14809038 (Version 2)
Quarter: 2018Q2

REPORT INFORMATION
  Report Type: Spontaneous
  Country: None (occurrence: US)
  Receive Date: 20180425
  Receipt Date: 20180515
  Transmission Date: 20180711
  Serious: Yes (Other)
  Sender: FDA-Public Use
  Company Number: US-MEDAC PHARMA, INC.-2046504

PATIENT
  Age: 66 Year
  Sex: Female

DRUGS (1)
  1. RASUVO [Suspect]
     Active Substance: METHOTREXATE SODIUM
     Indication: RHEUMATOID ARTHRITIS
     Dates: start: 201710, end: 201803

REACTIONS (4)
  - Condition aggravated [Unknown]
  - Fall [Unknown]
  - Drug ineffective [Unknown]
  - Rhabdomyolysis [Unknown]
